FAERS Safety Report 14919657 (Version 1)
Quarter: 2018Q2

REPORT INFORMATION
  Report Type: Spontaneous
  Country: NL (occurrence: NL)
  Receive Date: 20180521
  Receipt Date: 20180521
  Transmission Date: 20180711
  Serious: Yes (Death)
  Sender: FDA-Public Use
  Company Number: NL-PFIZER INC-2015279767

PATIENT
  Age: 46 Year
  Sex: Male

DRUGS (5)
  1. HYDROCORTISONE. [Concomitant]
     Active Substance: HYDROCORTISONE
     Dosage: 20 MG, 1X/DAY
     Route: 048
  2. SOMAVERT [Suspect]
     Active Substance: PEGVISOMANT
     Dosage: UNK
     Dates: start: 20070416
  3. INSULINE GLARGINE [Concomitant]
     Active Substance: INSULIN GLARGINE
  4. SOMAVERT [Suspect]
     Active Substance: PEGVISOMANT
     Indication: ACROMEGALY
     Dosage: 40 MG, 1X/DAY
     Route: 058
     Dates: start: 20110216, end: 20120209
  5. SOMAVERT [Suspect]
     Active Substance: PEGVISOMANT
     Dosage: 50 MG, 1X/DAY
     Route: 058
     Dates: start: 20120210, end: 2018

REACTIONS (3)
  - Off label use [Unknown]
  - Drug level below therapeutic [Not Recovered/Not Resolved]
  - Death [Fatal]

NARRATIVE: CASE EVENT DATE: 20110216
